FAERS Safety Report 6581300-6 (Version None)
Quarter: 2010Q1

REPORT INFORMATION
  Report Type: 
  Country: None (occurrence: None)
  Receive Date: 20100215
  Receipt Date: 20100210
  Transmission Date: 20100710
  Serious: Yes (Hospitalization)
  Sender: FDA-Public Use
  Company Number: FR-BRISTOL-MYERS SQUIBB COMPANY-14971923

PATIENT
  Age: 31 Year
  Sex: Female

DRUGS (12)
  1. ABILIFY [Suspect]
     Dosage: ALSO ON 05JAN-12JAN10
     Route: 048
     Dates: start: 20091212, end: 20100102
  2. ATARAX [Suspect]
     Dosage: ALSO ON 07JAN-08JAN10
     Route: 048
     Dates: start: 20091212, end: 20100107
  3. VALIUM [Concomitant]
     Dates: start: 20091212, end: 20091217
  4. ACUPAN [Concomitant]
     Dates: start: 20091212, end: 20091231
  5. VITAMIN [Concomitant]
     Dates: start: 20091212, end: 20100102
  6. NEXIUM [Concomitant]
     Dates: start: 20091212, end: 20100102
  7. NORSET [Concomitant]
  8. AVLOCARDYL [Concomitant]
     Dates: start: 20091229, end: 20100103
  9. TARDYFERON [Concomitant]
     Dates: start: 20091229, end: 20100103
  10. SERESTA [Concomitant]
     Dates: start: 20091231, end: 20100203
  11. NEURONTIN [Concomitant]
     Dates: start: 20100105, end: 20100107
  12. DIFFU-K [Concomitant]
     Dates: start: 20100105, end: 20100107

REACTIONS (1)
  - ENCEPHALOPATHY [None]
